FAERS Safety Report 4984590-6 (Version None)
Quarter: 2006Q2

REPORT INFORMATION
  Report Type: 
  Country: None (occurrence: None)
  Receive Date: 20060426
  Receipt Date: 20060426
  Transmission Date: 20061013
  Serious: Yes (Hospitalization)
  Sender: FDA-Public Use
  Company Number: None

PATIENT
  Age: 81 Year
  Sex: Male
  Weight: 67.586 kg

DRUGS (3)
  1. OXYCODONE 15 MG [Suspect]
     Indication: PAIN
     Dosage: 1-2 TAB Q4H PRN
     Dates: start: 20060308, end: 20060311
  2. GUAIFENSIN/CODEINE [Suspect]
     Indication: COUGH
     Dosage: 10 ML Q6H PRN
     Dates: start: 20050601, end: 20060301
  3. GUAIFENSIN/CODEINE [Suspect]
     Indication: RESPIRATORY DISORDER
     Dosage: 10 ML Q6H PRN
     Dates: start: 20050601, end: 20060301

REACTIONS (2)
  - CONFUSIONAL STATE [None]
  - MENTAL STATUS CHANGES [None]
